FAERS Safety Report 25737152 (Version 1)
Quarter: 2025Q3

REPORT INFORMATION
  Report Type: Spontaneous
  Country: US (occurrence: US)
  Receive Date: 20250828
  Receipt Date: 20250828
  Transmission Date: 20251021
  Serious: No
  Sender: PRASCO
  Company Number: US-Prasco Laboratories-PRAS20250289

PATIENT
  Age: 91 Year
  Sex: Female

DRUGS (1)
  1. ESTRADIOL [Suspect]
     Active Substance: ESTRADIOL
     Indication: Product used for unknown indication
     Route: 067

REACTIONS (3)
  - Chest pain [Unknown]
  - Pain in extremity [Unknown]
  - Unevaluable device issue [Unknown]
